FAERS Safety Report 8881973 (Version 1)
Quarter: 2012Q4

REPORT INFORMATION
  Report Type: 
  Country: IT (occurrence: IT)
  Receive Date: 20121101
  Receipt Date: 20121101
  Transmission Date: 20130627
  Serious: Yes (Other)
  Sender: FDA-Public Use
  Company Number: PHHY2012IT097712

PATIENT
  Age: 54 Year
  Sex: Female

DRUGS (5)
  1. PACLITAXEL [Suspect]
     Indication: BREAST CANCER
     Dosage: 142.2 mg, daily
     Route: 042
     Dates: start: 20121004
  2. AVASTIN [Suspect]
     Indication: BREAST CANCER
  3. DEXAMETHASONE [Concomitant]
  4. RANITIDINE [Concomitant]
  5. ONDANSETRON [Concomitant]

REACTIONS (6)
  - Sciatica [Recovering/Resolving]
  - Fluid retention [Recovering/Resolving]
  - Hypertension [Recovering/Resolving]
  - Neutropenia [Recovering/Resolving]
  - Erythema [Recovering/Resolving]
  - Diarrhoea [Recovering/Resolving]
